FAERS Safety Report 8303432-4 (Version None)
Quarter: 2012Q2

REPORT INFORMATION
  Report Type: 
  Country: None (occurrence: None)
  Receive Date: 20120423
  Receipt Date: 20120418
  Transmission Date: 20120825
  Serious: No
  Sender: FDA-Public Use
  Company Number: US-PFIZER INC-2012097429

PATIENT
  Sex: Male
  Weight: 87.5 kg

DRUGS (7)
  1. SUTENT [Suspect]
     Dosage: 50 MG, UNK
     Dates: start: 20120414
  2. ZONISAMIDE [Concomitant]
     Indication: CONVULSION
     Dosage: 200 MG, 2X/DAY
  3. IRON [Concomitant]
     Indication: ANAEMIA
  4. DILAUDID [Concomitant]
     Indication: ABDOMINAL PAIN UPPER
     Dosage: 4 MG, AS NEEDED
  5. ONDANSETRON [Concomitant]
     Indication: NAUSEA
     Dosage: 4 MG, EVERY 4 HOURS AS NEEDED
  6. CREON [Concomitant]
  7. GINGER [Concomitant]
     Indication: NAUSEA

REACTIONS (1)
  - VOMITING [None]
